FAERS Safety Report 10640770 (Version 3)
Quarter: 2015Q4

REPORT INFORMATION
  Report Type: Spontaneous
  Country: US (occurrence: None)
  Receive Date: 20141205
  Receipt Date: 20151104
  Transmission Date: 20160304
  Serious: Yes (Hospitalization)
  Sender: FDA-Public Use
  Company Number: RAP-0269-2014

PATIENT
  Age: 16 Year
  Sex: Male

DRUGS (2)
  1. PROGRAF (TACROLIMUS) (UNKNOWN) [Concomitant]
  2. PROCYSBI DELAYED-RELEASE [Suspect]
     Active Substance: CYSTEAMINE BITARTRATE
     Indication: CYSTINOSIS
     Dosage: (1125 MG, 1 IN 12 HR)
     Route: 048
     Dates: start: 201304

REACTIONS (2)
  - Blood creatinine increased [None]
  - Pyrexia [None]

NARRATIVE: CASE EVENT DATE: 20141027
